FAERS Safety Report 5640536-9 (Version None)
Quarter: 2008Q1

REPORT INFORMATION
  Report Type: 
  Country: None (occurrence: None)
  Receive Date: 20080227
  Receipt Date: 20080221
  Transmission Date: 20080703
  Serious: Yes (Hospitalization)
  Sender: FDA-Public Use
  Company Number: US-BRISTOL-MYERS SQUIBB COMPANY-13909924

PATIENT
  Age: 60 Year
  Sex: Male
  Weight: 66 kg

DRUGS (4)
  1. ERBITUX [Suspect]
     Indication: NON-SMALL CELL LUNG CANCER
     Dosage: FIRST INFUSION WAS ON 17-MAY-2007
     Route: 042
     Dates: start: 20070719, end: 20070719
  2. CARBOPLATIN [Suspect]
     Indication: NON-SMALL CELL LUNG CANCER
     Dosage: FIRST INFUSION WAS ON 17-MAY-2007
     Route: 042
     Dates: start: 20070719, end: 20070719
  3. TAXOL [Suspect]
     Indication: NON-SMALL CELL LUNG CANCER
     Dosage: FIRST INFUSION WAS ON 17-MAY-2007
     Route: 042
     Dates: start: 20070719, end: 20070719
  4. BEVACIZUMAB [Suspect]
     Indication: NON-SMALL CELL LUNG CANCER
     Dosage: FIRST INFUSION WAS ON 17-MAY-2007
     Route: 042
     Dates: start: 20070719, end: 20070719

REACTIONS (1)
  - LEUKOCYTOCLASTIC VASCULITIS [None]
